FAERS Safety Report 7139182-X (Version None)
Quarter: 2010Q4

REPORT INFORMATION
  Report Type: 
  Country: None (occurrence: None)
  Receive Date: 20101202
  Receipt Date: 20101202
  Transmission Date: 20110411
  Serious: No
  Sender: FDA-Public Use
  Company Number: None

PATIENT
  Age: 35 Year
  Sex: Female
  Weight: 56.6996 kg

DRUGS (1)
  1. AMBIEN [Suspect]
     Indication: INSOMNIA
     Dosage: 2 MG NIGHTLY PO  ONCE A NIGHT
     Route: 048
     Dates: start: 20101014, end: 20101020

REACTIONS (4)
  - APATHY [None]
  - DEPRESSION [None]
  - SLUGGISHNESS [None]
  - SOMNOLENCE [None]
